FAERS Safety Report 10215921 (Version 1)
Quarter: 2014Q2

REPORT INFORMATION
  Report Type: Spontaneous
  Country: PL (occurrence: PL)
  Receive Date: 20140604
  Receipt Date: 20140604
  Transmission Date: 20141212
  Serious: Yes (Hospitalization, Other)
  Sender: FDA-Public Use
  Company Number: PL-JNJFOC-20140600048

PATIENT
  Age: 21 Month
  Sex: Male
  Weight: 12 kg

DRUGS (2)
  1. PARACETAMOL [Suspect]
     Indication: VARICELLA
     Dosage: DOSAGE: 7.5 ML OF SUSPENSION I.E 180 MG; 15MG/KG
     Route: 048
  2. PARACETAMOL [Suspect]
     Indication: PYREXIA
     Dosage: DOSAGE: 7.5 ML OF SUSPENSION I.E 180 MG; 15MG/KG
     Route: 048

REACTIONS (1)
  - Angioedema [Recovering/Resolving]
